FAERS Safety Report 8333199 (Version 2)
Quarter: 2013Q2

REPORT INFORMATION
  Report Type: Spontaneous
  Country: US (occurrence: US)
  Receive Date: 20111130
  Receipt Date: 20130528
  Transmission Date: 20140414
  Serious: Yes (Other)
  Sender: FDA-Public Use
  Company Number: US201007007863

PATIENT
  Sex: Female
  Weight: 93.42 kg

DRUGS (19)
  1. BYETTA PEN DISPOSABLE [Suspect]
     Route: 058
  2. BYETTA PEN DISPOSABLE [Suspect]
     Route: 058
  3. BYETTA PEN DISPOSABLE [Suspect]
     Dates: start: 20070802
  4. METFORMIN [Concomitant]
     Indication: DIABETES MELLITUS
     Dates: start: 2002
  5. SIMVASTATIN [Concomitant]
     Dates: start: 2002
  6. CELEXA [Concomitant]
     Dates: start: 2002
  7. PLENDIL [Concomitant]
  8. TRICOR [Concomitant]
  9. ZETIA [Concomitant]
  10. GEODON [Concomitant]
  11. LEXAPRO [Concomitant]
  12. LISINOPRIL [Concomitant]
  13. LISINOPRIL [Concomitant]
  14. ENALAPRIL [Concomitant]
  15. INDOMETHACIN [Concomitant]
  16. FELODIPINE [Concomitant]
  17. GLUCOPHAGE [Concomitant]
     Route: 048
  18. CHANTIX [Concomitant]
  19. IBUPROFEN [Concomitant]

REACTIONS (2)
  - Renal failure [Unknown]
  - Pancreatitis [Unknown]
